FAERS Safety Report 6735408-2 (Version None)
Quarter: 2010Q2

REPORT INFORMATION
  Report Type: 
  Country: None (occurrence: None)
  Receive Date: 20100521
  Receipt Date: 20100507
  Transmission Date: 20101027
  Serious: Yes (Other)
  Sender: FDA-Public Use
  Company Number: PHHY2009JP22845

PATIENT
  Sex: Male

DRUGS (9)
  1. TASIGNA [Suspect]
     Indication: CHRONIC MYELOID LEUKAEMIA
     Dosage: 400 MG/DAY
     Route: 048
     Dates: start: 20090408, end: 20090507
  2. TASIGNA [Suspect]
     Dosage: 200 MG/DAY
     Route: 048
     Dates: start: 20090522, end: 20090813
  3. SUMIFERON [Concomitant]
     Indication: CHRONIC MYELOID LEUKAEMIA
     Dosage: 3 MIU, UNK
     Route: 042
     Dates: start: 20060712, end: 20070206
  4. PREDONINE [Concomitant]
     Indication: CHRONIC MYELOID LEUKAEMIA
     Dosage: 5 MG, UNK
     Route: 048
  5. ZYLORIC [Concomitant]
     Indication: CHRONIC MYELOID LEUKAEMIA
     Dosage: 100 MG, UNK
     Route: 048
  6. IRSOGLADINE MALEATE [Concomitant]
     Indication: CHRONIC MYELOID LEUKAEMIA
     Dosage: 4 MG, UNK
     Route: 048
  7. URALYT [Concomitant]
     Indication: CHRONIC MYELOID LEUKAEMIA
     Dosage: 2 DF, UNK
     Route: 048
  8. CARDIOVASCULAR DRUGS [Concomitant]
  9. GASLON [Concomitant]
     Dosage: 4 MG
     Route: 048

REACTIONS (4)
  - ARRHYTHMIA [None]
  - ATRIAL FIBRILLATION [None]
  - CONDITION AGGRAVATED [None]
  - ELECTROCARDIOGRAM QT PROLONGED [None]
